FAERS Safety Report 7021579-X (Version None)
Quarter: 2010Q3

REPORT INFORMATION
  Report Type: 
  Country: None (occurrence: None)
  Receive Date: 20100928
  Receipt Date: 20100910
  Transmission Date: 20110219
  Serious: Yes (Other)
  Sender: FDA-Public Use
  Company Number: JPI-P-012187

PATIENT
  Age: 39 Year
  Sex: Female
  Weight: 54.4316 kg

DRUGS (6)
  1. XYREM [Suspect]
     Indication: NARCOLEPSY
     Dosage: ,ORAL,  6 GM (3 GM,2 IN 1 D),ORAL
     Route: 048
     Dates: start: 20100501, end: 20100101
  2. XYREM [Suspect]
     Indication: NARCOLEPSY
     Dosage: ,ORAL,  6 GM (3 GM,2 IN 1 D),ORAL
     Route: 048
     Dates: start: 20100101
  3. METHYLPHENIDATE [Concomitant]
  4. LEVOTHYROXINE [Concomitant]
  5. BUPROPION [Concomitant]
  6. MULTI-VITAMINS [Concomitant]

REACTIONS (4)
  - DEHYDRATION [None]
  - MUSCLE SPASMS [None]
  - POLLAKIURIA [None]
  - POOR VENOUS ACCESS [None]
